FAERS Safety Report 17819232 (Version 1)
Quarter: 2020Q2

REPORT INFORMATION
  Report Type: Report from Study
  Country: BN (occurrence: BN)
  Receive Date: 20200523
  Receipt Date: 20200523
  Transmission Date: 20200714
  Serious: Yes (Other)
  Sender: FDA-Public Use
  Company Number: BN-ACCORD-182780

PATIENT
  Age: 67 Year
  Sex: Male

DRUGS (2)
  1. LOPINAVIR/RITONAVIR [Concomitant]
     Active Substance: LOPINAVIR\RITONAVIR
  2. HYDROXYCHLOROQUINE [Suspect]
     Active Substance: HYDROXYCHLOROQUINE
     Indication: COVID-19
     Dosage: 400 MG TWICE DAILY DAY-1 AND 200 MG TWICE DAILY DAY-2 TO 5

REACTIONS (1)
  - Bradycardia [Recovered/Resolved]
